FAERS Safety Report 5051933-7 (Version None)
Quarter: 2006Q3

REPORT INFORMATION
  Report Type: 
  Country: None (occurrence: None)
  Receive Date: 20060711
  Receipt Date: 20060620
  Transmission Date: 20061208
  Serious: Yes (Hospitalization, Other)
  Sender: FDA-Public Use
  Company Number: US200606004377

PATIENT
  Age: 71 Year
  Sex: Male

DRUGS (2)
  1. HUMALOG MIX 75/25 [Suspect]
     Indication: DIABETES MELLITUS
     Dosage: 2/D,
     Dates: start: 20040101
  2. HUMALOG MIX 25L / 75NPL PEN [Concomitant]

REACTIONS (5)
  - CHRONIC OBSTRUCTIVE PULMONARY DISEASE [None]
  - HEART RATE IRREGULAR [None]
  - HYPERTENSION [None]
  - NEOPLASM MALIGNANT [None]
  - SKIN LESION [None]
